FAERS Safety Report 8404803 (Version 2)
Quarter: 2012Q4

REPORT INFORMATION
  Report Type: 
  Country: US (occurrence: US)
  Receive Date: 20120214
  Receipt Date: 20120910
  Transmission Date: 20130627
  Serious: Yes (Hospitalization)
  Sender: FDA-Public Use
  Company Number: US-BAYER-2012-013735

PATIENT
  Age: 37 Year
  Sex: Female
  Weight: 66.21 kg

DRUGS (6)
  1. YAZ [Suspect]
  2. IBUPROFEN [Concomitant]
     Dosage: UNK UNK, PRN
  3. ASPIRIN [Concomitant]
     Dosage: UNK UNK, PRN
  4. TYLENOL [Concomitant]
     Dosage: UNK UNK, PRN
  5. LEXAPRO [Concomitant]
     Dosage: UNK
     Dates: start: 200612
  6. TRICYCLEN [Concomitant]

REACTIONS (1)
  - Deep vein thrombosis [None]
